FAERS Safety Report 10072111 (Version 1)
Quarter: 2014Q2

REPORT INFORMATION
  Report Type: Spontaneous
  Country: US (occurrence: None)
  Receive Date: 20140410
  Receipt Date: 20140410
  Transmission Date: 20141212
  Serious: Yes (Hospitalization)
  Sender: FDA-Public Use
  Company Number: None

PATIENT
  Age: 84 Year
  Sex: Male
  Weight: 67 kg

DRUGS (1)
  1. FUROSEMIDE 20MG [Suspect]
     Indication: HYPERTENSION
     Route: 048

REACTIONS (1)
  - Hyponatraemia [None]
